FAERS Safety Report 9095265 (Version 1)
Quarter: 2013Q1

REPORT INFORMATION
  Report Type: Spontaneous
  Country: PE (occurrence: PE)
  Receive Date: 20130220
  Receipt Date: 20130220
  Transmission Date: 20140127
  Serious: Yes (Death)
  Sender: FDA-Public Use
  Company Number: PHHY2013PE015849

PATIENT
  Age: 70 Year
  Sex: Male

DRUGS (1)
  1. EXFORGE HCT [Suspect]
     Dosage: UNK UKN, UNK
     Dates: start: 20130215

REACTIONS (1)
  - Anaphylactic reaction [Fatal]
